FAERS Safety Report 9929491 (Version 1)
Quarter: 2014Q1

REPORT INFORMATION
  Report Type: Spontaneous
  Country: US (occurrence: US)
  Receive Date: 20140227
  Receipt Date: 20140227
  Transmission Date: 20141002
  Serious: Yes (Other)
  Sender: FDA-Public Use
  Company Number: CHPA2014US002800

PATIENT
  Age: 63 Year
  Sex: Female

DRUGS (6)
  1. IBUPROFEN [Suspect]
     Indication: PAIN
     Dosage: 200 MG, TID
     Route: 048
  2. IBUPROFEN [Suspect]
     Indication: ARTHRITIS
  3. IBUPROFEN [Suspect]
     Indication: HEADACHE
  4. IBUPROFEN [Suspect]
     Indication: NEURALGIA
  5. IBUPROFEN [Suspect]
     Indication: BONE PAIN
  6. IBUPROFEN [Suspect]
     Indication: OFF LABEL USE

REACTIONS (6)
  - Wrist fracture [Recovering/Resolving]
  - Neuralgia [Not Recovered/Not Resolved]
  - Bone pain [Not Recovered/Not Resolved]
  - Arthritis [Not Recovered/Not Resolved]
  - Inflammation [Not Recovered/Not Resolved]
  - Contusion [Not Recovered/Not Resolved]
